FAERS Safety Report 7216987-8 (Version None)
Quarter: 2010Q4

REPORT INFORMATION
  Report Type: 
  Country: None (occurrence: None)
  Receive Date: 20101223
  Receipt Date: 20101217
  Transmission Date: 20110411
  Serious: Yes (Other)
  Sender: FDA-Public Use
  Company Number: 2010SP058969

PATIENT
  Age: 22 Year
  Sex: Female
  Weight: 43 kg

DRUGS (2)
  1. IMPLANON [Suspect]
     Indication: CONTRACEPTION
     Dosage: 1 DF; SC
     Route: 058
     Dates: start: 20100208
  2. IMPLANON [Suspect]
     Indication: CONTRACEPTION
     Dosage: 1DF; SC
     Route: 058
     Dates: start: 20100208

REACTIONS (3)
  - AMENORRHOEA [None]
  - ENDOMETRIAL METAPLASIA [None]
  - OVARIAN CYST [None]
